FAERS Safety Report 7263579-0 (Version None)
Quarter: 2011Q1

REPORT INFORMATION
  Report Type: 
  Country: None (occurrence: None)
  Receive Date: 20110130
  Receipt Date: 20101108
  Transmission Date: 20110831
  Serious: No
  Sender: FDA-Public Use
  Company Number: US-ABBOTT-10P-163-0683955-00

PATIENT
  Age: 58 Year
  Sex: Female

DRUGS (6)
  1. SIMVASTATIN [Concomitant]
     Indication: BLOOD CHOLESTEROL INCREASED
  2. CALCIUM +D [Concomitant]
     Indication: OSTEOPENIA
  3. PROBIOTICS [Concomitant]
     Indication: GASTROINTESTINAL DISORDER
  4. PROTONIX [Concomitant]
     Indication: GASTROOESOPHAGEAL REFLUX DISEASE
  5. HUMIRA [Suspect]
     Indication: CROHN'S DISEASE
     Dates: start: 20100908
  6. ATENOLOL [Concomitant]
     Indication: ATRIAL FIBRILLATION

REACTIONS (1)
  - HIRSUTISM [None]
